FAERS Safety Report 7980717-2 (Version None)
Quarter: 2011Q4

REPORT INFORMATION
  Report Type: 
  Country: None (occurrence: None)
  Receive Date: 20111214
  Receipt Date: 20111212
  Transmission Date: 20120403
  Serious: Yes (Other)
  Sender: FDA-Public Use
  Company Number: GR-BAYER-2011-119677

PATIENT
  Age: 70 Year
  Sex: Male

DRUGS (4)
  1. LEVITRA [Suspect]
     Dosage: DAILY DOSE 10 MG
     Route: 048
     Dates: start: 20100901, end: 20110901
  2. LEVITRA [Suspect]
     Indication: ERECTILE DYSFUNCTION
     Dosage: DAILY DOSE 20 MG
     Route: 048
     Dates: start: 20110901, end: 20111201
  3. ZANTAC [Concomitant]
     Indication: GASTROOESOPHAGEAL REFLUX DISEASE
     Dosage: UNK
     Route: 048
  4. PANTOPRAZOLE [Concomitant]
     Indication: GASTROOESOPHAGEAL REFLUX DISEASE

REACTIONS (5)
  - VISION BLURRED [None]
  - TINNITUS [None]
  - HEARING IMPAIRED [None]
  - HYPOACUSIS [None]
  - VISUAL IMPAIRMENT [None]
